FAERS Safety Report 6292657-8 (Version None)
Quarter: 2009Q3

REPORT INFORMATION
  Report Type: 
  Country: None (occurrence: None)
  Receive Date: 20090731
  Receipt Date: 20090730
  Transmission Date: 20100115
  Serious: Yes (Other)
  Sender: FDA-Public Use
  Company Number: US-PURDUE-USA-2009-0039366

PATIENT
  Sex: Female

DRUGS (1)
  1. RYZOLT [Suspect]
     Indication: DRUG USE FOR UNKNOWN INDICATION
     Dosage: 300 MG, DAILY

REACTIONS (1)
  - HYPERSOMNIA [None]
